FAERS Safety Report 4932167-0 (Version None)
Quarter: 2006Q1

REPORT INFORMATION
  Report Type: 
  Country: None (occurrence: None)
  Receive Date: 20060303
  Receipt Date: 20060222
  Transmission Date: 20060701
  Serious: Yes (Hospitalization)
  Sender: FDA-Public Use
  Company Number: GB-BRISTOL-MYERS SQUIBB COMPANY-13291919

PATIENT
  Age: 42 Year
  Sex: Female
  Weight: 80 kg

DRUGS (6)
  1. CISPLATIN [Suspect]
     Indication: SMALL CELL CARCINOMA
     Route: 042
     Dates: start: 20051103, end: 20051103
  2. ETOPOSIDE [Suspect]
     Indication: SMALL CELL CARCINOMA
     Route: 042
  3. OMEPRAZOLE [Concomitant]
     Route: 048
  4. WARFARIN [Concomitant]
     Route: 048
     Dates: start: 20051027
  5. MUCAINE [Concomitant]
     Route: 048
  6. CYCLIZINE [Concomitant]
     Indication: NAUSEA
     Route: 048

REACTIONS (4)
  - BACK PAIN [None]
  - BODY TEMPERATURE [None]
  - COUGH [None]
  - NEUTROPENIC SEPSIS [None]
